FAERS Safety Report 24307853 (Version 1)
Quarter: 2024Q3

REPORT INFORMATION
  Report Type: Spontaneous
  Country: US (occurrence: None)
  Receive Date: 20240911
  Receipt Date: 20240911
  Transmission Date: 20241017
  Serious: Yes (Hospitalization)
  Sender: Public
  Company Number: None

PATIENT
  Age: 35 Year
  Sex: Male

DRUGS (5)
  1. SKYRIZI [Suspect]
     Active Substance: RISANKIZUMAB-RZAA
     Indication: Crohn^s disease
     Dosage: FREQ: INJECT 360 MG UNDER THE SKIN (SUBCUTANEOUS INJECTION) AT WEEK 12 AND EVERY 8 WEEKS THEREAFTER?
     Route: 058
     Dates: start: 20240213
  2. AMITRIPTYLIN TAB [Concomitant]
  3. FERROUS GLUC TAB [Concomitant]
  4. MULTIVITAMIN CAP DAILY [Concomitant]
  5. OMEPRAZOLE SODIUM [Concomitant]
     Active Substance: OMEPRAZOLE SODIUM

REACTIONS (4)
  - Abscess [None]
  - Quality of life decreased [None]
  - Inappropriate schedule of product administration [None]
  - Diarrhoea [None]

NARRATIVE: CASE EVENT DATE: 20240601
